FAERS Safety Report 5262296-6 (Version None)
Quarter: 2007Q1

REPORT INFORMATION
  Report Type: 
  Country: None (occurrence: None)
  Receive Date: 20070312
  Receipt Date: 20070226
  Transmission Date: 20070707
  Serious: Yes (Other)
  Sender: FDA-Public Use
  Company Number: PHRM2007FR00900

PATIENT
  Sex: Female

DRUGS (2)
  1. TEGRETOL [Suspect]
     Indication: CEREBRAL CYST
     Dosage: 200 MG/DAY
     Route: 048
     Dates: start: 19860101
  2. FOLIC ACID [Concomitant]
     Dosage: 5 MG, QD
     Route: 048

REACTIONS (8)
  - ABORTION INDUCED [None]
  - CARDIAC MALPOSITION [None]
  - CONGENITAL TRICUSPID VALVE ATRESIA [None]
  - DEXTROCARDIA [None]
  - DRUG EXPOSURE DURING PREGNANCY [None]
  - HEART DISEASE CONGENITAL [None]
  - ULTRASOUND SCAN ABNORMAL [None]
  - UNIVENTRICULAR HEART [None]
